FAERS Safety Report 25589920 (Version 1)
Quarter: 2025Q3

REPORT INFORMATION
  Report Type: Spontaneous
  Country: US (occurrence: US)
  Receive Date: 20250722
  Receipt Date: 20250722
  Transmission Date: 20251020
  Serious: Yes (Other)
  Sender: ABBVIE
  Company Number: US-ABBVIE-6377111

PATIENT
  Sex: Female

DRUGS (2)
  1. LUPRON DEPOT [Suspect]
     Active Substance: LEUPROLIDE ACETATE
     Indication: Endometriosis
     Route: 030
     Dates: start: 2024
  2. LUPRON DEPOT [Suspect]
     Active Substance: LEUPROLIDE ACETATE
     Route: 030
     Dates: start: 2025

REACTIONS (5)
  - Endometriosis [Unknown]
  - Gastrointestinal motility disorder [Unknown]
  - Product quality issue [Not Recovered/Not Resolved]
  - Impaired gastric emptying [Unknown]
  - Postural orthostatic tachycardia syndrome [Unknown]
